FAERS Safety Report 5504288-5 (Version None)
Quarter: 2007Q4

REPORT INFORMATION
  Report Type: 
  Country: None (occurrence: None)
  Receive Date: 20071101
  Receipt Date: 20071018
  Transmission Date: 20080405
  Serious: Yes (Other)
  Sender: FDA-Public Use
  Company Number: GB-RANBAXY-2007RR-10857

PATIENT

DRUGS (1)
  1. TAMSULOSIN HCL [Suspect]
     Dosage: 0.4 MG, UNK
     Route: 048

REACTIONS (2)
  - ARRHYTHMIA [None]
  - FLOPPY IRIS SYNDROME [None]
